FAERS Safety Report 7347699-8 (Version None)
Quarter: 2011Q1

REPORT INFORMATION
  Report Type: 
  Country: None (occurrence: None)
  Receive Date: 20110311
  Receipt Date: 20110301
  Transmission Date: 20110831
  Serious: Yes (Life-Threatening, Hospitalization)
  Sender: FDA-Public Use
  Company Number: B0703302A

PATIENT
  Age: 86 Year
  Sex: Female

DRUGS (7)
  1. ALDACTONE [Concomitant]
  2. LEVOTHYROXINE SODIUM [Concomitant]
     Indication: HYPOTHYROIDISM
  3. SOTALOL HYDROCHLORIDE [Concomitant]
  4. ALPRAZOLAM [Concomitant]
     Indication: DEPRESSION
  5. ANTIBIOTIC [Concomitant]
  6. ARIXTRA [Suspect]
     Indication: THROMBOSIS PROPHYLAXIS
     Dosage: 2.5MG PER DAY
     Route: 058
     Dates: start: 20110101, end: 20110225
  7. IMOVANE [Concomitant]

REACTIONS (4)
  - SOMNOLENCE [None]
  - INCORRECT DRUG ADMINISTRATION DURATION [None]
  - SUBARACHNOID HAEMORRHAGE [None]
  - DEPRESSED LEVEL OF CONSCIOUSNESS [None]
